FAERS Safety Report 9657825 (Version 3)
Quarter: 2013Q4

REPORT INFORMATION
  Report Type: Spontaneous
  Country: JP (occurrence: JP)
  Receive Date: 20131030
  Receipt Date: 20131112
  Transmission Date: 20140711
  Serious: Yes (Hospitalization)
  Sender: FDA-Public Use
  Company Number: JP-PFIZER INC-2013296840

PATIENT
  Age: 46 Year
  Sex: Male

DRUGS (1)
  1. CISPLATIN [Suspect]
     Indication: OROPHARYNGEAL CANCER
     Dosage: 80 MG, CYCLIC
     Dates: start: 201109

REACTIONS (1)
  - Toxic epidermal necrolysis [Recovered/Resolved]
